FAERS Safety Report 11666885 (Version 1)
Quarter: 2015Q4

REPORT INFORMATION
  Report Type: Spontaneous
  Country: US (occurrence: US)
  Receive Date: 20151027
  Receipt Date: 20151027
  Transmission Date: 20160304
  Serious: No
  Sender: FDA-Public Use
  Company Number: US-ELI_LILLY_AND_COMPANY-US201002003309

PATIENT
  Sex: Female

DRUGS (2)
  1. FORTEO [Suspect]
     Active Substance: TERIPARATIDE
     Dosage: 20 UG, DAILY (1/D)
     Dates: start: 2009
  2. ANTIBIOTICS [Concomitant]
     Active Substance: UNSPECIFIED INGREDIENT

REACTIONS (17)
  - Weight increased [Unknown]
  - Blood pressure decreased [Not Recovered/Not Resolved]
  - Tooth disorder [Unknown]
  - Pain in jaw [Unknown]
  - Lip pain [Unknown]
  - Alopecia [Unknown]
  - Muscle spasms [Unknown]
  - Abdominal distension [Unknown]
  - Malaise [Unknown]
  - Sensation of foreign body [Unknown]
  - Headache [Unknown]
  - Nasopharyngitis [Recovering/Resolving]
  - Back pain [Unknown]
  - Throat tightness [Unknown]
  - Somnolence [Unknown]
  - Immune system disorder [Unknown]
  - Cushingoid [Unknown]

NARRATIVE: CASE EVENT DATE: 2009
